FAERS Safety Report 5308567-6 (Version None)
Quarter: 2007Q2

REPORT INFORMATION
  Report Type: 
  Country: None (occurrence: None)
  Receive Date: 20070426
  Receipt Date: 20070424
  Transmission Date: 20071010
  Serious: Yes (Hospitalization)
  Sender: FDA-Public Use
  Company Number: HQWYE436224JAN07

PATIENT
  Age: 76 Year
  Sex: Female

DRUGS (4)
  1. CORDARONE [Suspect]
     Indication: ARRHYTHMIA
     Route: 048
     Dates: start: 20030101, end: 20061201
  2. CORDARONE [Suspect]
     Dosage: NOT SPECIFIED
  3. ZOCOR [Concomitant]
     Indication: HYPERCHOLESTEROLAEMIA
     Dosage: 20 MG EVERY
     Route: 048
  4. COZAAR [Concomitant]
     Indication: ESSENTIAL HYPERTENSION
     Dosage: 50 MG; FREQUENCY NOT SPECIFIED
     Route: 048

REACTIONS (3)
  - HEADACHE [None]
  - HYPOTHYROIDISM [None]
  - NECK PAIN [None]
